FAERS Safety Report 4471973-6 (Version None)
Quarter: 2004Q4

REPORT INFORMATION
  Report Type: 
  Country: None (occurrence: None)
  Receive Date: 20041007
  Receipt Date: 20040930
  Transmission Date: 20050328
  Serious: Yes (Death, Other)
  Sender: FDA-Public Use
  Company Number: 200410414BFR

PATIENT
  Age: 52 Year
  Sex: Male

DRUGS (6)
  1. MOXIFLOXACIN HYDROCHLORIDE [Suspect]
     Indication: BRONCHITIS ACUTE
     Dosage: 400 MG, TOTAL DAILY, ORAL
     Route: 048
     Dates: start: 20040616, end: 20040618
  2. CELECTOL [Concomitant]
  3. ISOPTIN [Concomitant]
  4. VASTEN [Concomitant]
  5. TENORMIN [Concomitant]
  6. IMOVANE [Concomitant]

REACTIONS (8)
  - ASCITES [None]
  - BRADYCARDIA [None]
  - FALL [None]
  - HEPATITIS FULMINANT [None]
  - LIVER DISORDER [None]
  - MALAISE [None]
  - SYNCOPE [None]
  - TORSADE DE POINTES [None]
